FAERS Safety Report 12851462 (Version 3)
Quarter: 2017Q1

REPORT INFORMATION
  Report Type: Spontaneous
  Country: US (occurrence: US)
  Receive Date: 20161017
  Receipt Date: 20170106
  Transmission Date: 20170428
  Serious: Yes (Other)
  Sender: FDA-Public Use
  Company Number: US-JNJFOC-20160822645

PATIENT
  Sex: Male

DRUGS (1)
  1. YONDELIS [Suspect]
     Active Substance: TRABECTEDIN
     Indication: NEOPLASM MALIGNANT
     Route: 042

REACTIONS (4)
  - Neoplasm progression [Unknown]
  - Peripheral swelling [Unknown]
  - Drug intolerance [Unknown]
  - Drug ineffective [Unknown]
